FAERS Safety Report 5581024-8 (Version None)
Quarter: 2007Q4

REPORT INFORMATION
  Report Type: 
  Country: None (occurrence: None)
  Receive Date: 20071130
  Receipt Date: 20070724
  Transmission Date: 20080405
  Serious: No
  Sender: FDA-Public Use
  Company Number: US200707002774

PATIENT
  Age: 66 Year
  Sex: Female

DRUGS (12)
  1. BYETTA [Suspect]
     Indication: TYPE 2 DIABETES MELLITUS
     Dosage: 5 UG, 2/D, 10 UG, 2/D, SUBCUTANEOUS
     Route: 058
     Dates: start: 20060101, end: 20060101
  2. BYETTA [Suspect]
     Indication: TYPE 2 DIABETES MELLITUS
     Dosage: 5 UG, 2/D, 10 UG, 2/D, SUBCUTANEOUS
     Route: 058
     Dates: start: 20060101
  3. AMARYL [Concomitant]
  4. GLUCOPHAGE [Concomitant]
  5. LASIX [Concomitant]
  6. NITRODERM (GLUCERYL TRINITRATE) [Concomitant]
  7. COZAAR (LOSARTAN POOTASSIUM) [Concomitant]
  8. SPIRONO (SPIRONOLACTONE) [Concomitant]
  9. ZOCOR [Concomitant]
  10. LOPRESSOR [Concomitant]
  11. ASA (ASPIRIN (ACETYLSALICYLIC ACID) [Concomitant]
  12. PRILOSEC [Concomitant]

REACTIONS (3)
  - DECREASED APPETITE [None]
  - GASTROOESOPHAGEAL REFLUX DISEASE [None]
  - NAUSEA [None]
